FAERS Safety Report 4456542-6 (Version None)
Quarter: 2004Q3

REPORT INFORMATION
  Report Type: 
  Country: None (occurrence: None)
  Receive Date: 20040921
  Receipt Date: 20040506
  Transmission Date: 20050211
  Serious: Yes (Death)
  Sender: FDA-Public Use
  Company Number: 2004212867BR

PATIENT
  Age: 72 Year
  Sex: Female

DRUGS (2)
  1. GENOTROPIN(SOMATROPIN) POWDER, STERILE [Suspect]
     Dosage: SUBCUTANEOUS
     Route: 058
     Dates: start: 20020601
  2. POSTOVAL [Concomitant]

REACTIONS (1)
  - GLIOBLASTOMA [None]
